FAERS Safety Report 23210342 (Version 2)
Quarter: 2024Q1

REPORT INFORMATION
  Report Type: Spontaneous
  Country: FR (occurrence: FR)
  Receive Date: 20231121
  Receipt Date: 20240103
  Transmission Date: 20240410
  Serious: Yes (Disabling)
  Sender: FDA-Public Use
  Company Number: None

PATIENT
  Age: 65 Year
  Sex: Female
  Weight: 38 kg

DRUGS (2)
  1. ROSUVASTATIN CALCIUM [Suspect]
     Active Substance: ROSUVASTATIN CALCIUM
     Indication: Blood cholesterol
     Dates: start: 20230616, end: 20230925
  2. KARDEGIC [Concomitant]
     Active Substance: ASPIRIN DL-LYSINE
     Dosage: STRENGTH: 75 MG, DOSAGE FORM: POWDER FOR ORAL SOLUTION IN SACHET-DOSE

REACTIONS (1)
  - Tendon disorder [Recovered/Resolved]

NARRATIVE: CASE EVENT DATE: 20230601
